FAERS Safety Report 20420545 (Version 1)
Quarter: 2022Q1

REPORT INFORMATION
  Report Type: Spontaneous
  Country: US (occurrence: None)
  Receive Date: 20220202
  Receipt Date: 20220202
  Transmission Date: 20220423
  Serious: Yes (Other)
  Sender: FDA-Public Use
  Company Number: None

PATIENT
  Age: 64 Year
  Sex: Female
  Weight: 48 kg

DRUGS (1)
  1. PAXLOVID [Suspect]
     Active Substance: NIRMATRELVIR\RITONAVIR
     Indication: COVID-19
     Dosage: TWICE A DAY ORAL?
     Route: 048

REACTIONS (4)
  - Hypersensitivity [None]
  - Swollen tongue [None]
  - Lymphadenopathy [None]
  - Dysphagia [None]

NARRATIVE: CASE EVENT DATE: 20220126
